FAERS Safety Report 15714177 (Version 1)
Quarter: 2018Q4

REPORT INFORMATION
  Report Type: Spontaneous
  Country: US (occurrence: US)
  Receive Date: 20181212
  Receipt Date: 20181212
  Transmission Date: 20190205
  Serious: Yes (Hospitalization)
  Sender: FDA-Public Use
  Company Number: US-VYERA PHARMACEUTICALS, LLC-2018VYE00047

PATIENT
  Age: 56 Year
  Sex: Female

DRUGS (23)
  1. DARAPRIM [Suspect]
     Active Substance: PYRIMETHAMINE
     Indication: HIV INFECTION
     Dosage: 25 MG, 1X/DAY
     Route: 048
     Dates: start: 2016
  2. ^PONYTOIN^ [Concomitant]
  3. HUMALOG [Concomitant]
     Active Substance: INSULIN LISPRO
  4. IRON [Concomitant]
     Active Substance: IRON
  5. ATORVASTATIN [Concomitant]
     Active Substance: ATORVASTATIN
  6. MULTI VITAMIN [Concomitant]
     Active Substance: VITAMINS
  7. LEVOTHYROXINE. [Concomitant]
     Active Substance: LEVOTHYROXINE
  8. ASPIRIN. [Concomitant]
     Active Substance: ASPIRIN
  9. SULFADIAZINE. [Concomitant]
     Active Substance: SULFADIAZINE
  10. SELZENTRY [Concomitant]
     Active Substance: MARAVIROC
  11. ISENTRESS [Concomitant]
     Active Substance: RALTEGRAVIR POTASSIUM
  12. INTELENCE [Concomitant]
     Active Substance: ETRAVIRINE
  13. DILANTIN [Concomitant]
     Active Substance: PHENYTOIN
  14. VITAMIN B12 [Concomitant]
     Active Substance: CYANOCOBALAMIN
  15. TRULICITY [Concomitant]
     Active Substance: DULAGLUTIDE
  16. TRESIBA [Concomitant]
     Active Substance: INSULIN DEGLUDEC
  17. OMEPRAZOLE. [Concomitant]
     Active Substance: OMEPRAZOLE
  18. NIACIN. [Concomitant]
     Active Substance: NIACIN
  19. JANUVIA [Concomitant]
     Active Substance: SITAGLIPTIN PHOSPHATE
  20. VITAMIN D [Concomitant]
     Active Substance: CHOLECALCIFEROL
  21. LOSARTAN POTASSIUM. [Concomitant]
     Active Substance: LOSARTAN POTASSIUM
  22. LEUCOVORIN. [Concomitant]
     Active Substance: LEUCOVORIN
  23. FUROSEMIDE. [Concomitant]
     Active Substance: FUROSEMIDE

REACTIONS (3)
  - Seizure [Unknown]
  - Product dose omission [Recovered/Resolved]
  - Off label use [Not Recovered/Not Resolved]

NARRATIVE: CASE EVENT DATE: 2016
